FAERS Safety Report 7207106-2 (Version None)
Quarter: 2011Q1

REPORT INFORMATION
  Report Type: 
  Country: None (occurrence: None)
  Receive Date: 20110103
  Receipt Date: 20101222
  Transmission Date: 20110831
  Serious: Yes (Hospitalization)
  Sender: FDA-Public Use
  Company Number: US-ELI_LILLY_AND_COMPANY-US201012006204

PATIENT
  Sex: Male
  Weight: 78.63 kg

DRUGS (16)
  1. CETUXIMAB [Suspect]
     Indication: NON-SMALL CELL LUNG CANCER
     Dosage: 800 MG, UNK
     Dates: start: 20100907
  2. DULCOLAX [Concomitant]
     Indication: CONSTIPATION
     Dosage: 5 MG, AS NEEDED
     Route: 048
     Dates: start: 20101109
  3. LORTAB [Concomitant]
     Indication: PAIN
     Dosage: 10 MG, OTHER
     Route: 048
     Dates: start: 20100817
  4. MIRALAX [Concomitant]
     Indication: CONSTIPATION
     Dosage: UNK, DAILY (1/D)
     Route: 048
     Dates: start: 20100907
  5. CELEXA [Concomitant]
     Indication: DEPRESSION
     Dosage: 20 MG, DAILY (1/D)
     Dates: start: 20100914
  6. VITAMIN B-12 [Concomitant]
     Dosage: 1000 UG, UNK
     Route: 030
     Dates: start: 20100831, end: 20101102
  7. NEULASTA [Concomitant]
     Indication: NEUTROPENIA
     Dosage: 6 MG, UNK
     Route: 058
     Dates: start: 20101026, end: 20101027
  8. PEMETREXED [Suspect]
     Indication: NON-SMALL CELL LUNG CANCER
     Dosage: 975 MG, UNK
     Dates: start: 20100909, end: 20101130
  9. DURAGESIC-50 [Concomitant]
     Indication: PAIN
     Dosage: 25 UG, OTHER
     Route: 061
     Dates: start: 20100914
  10. PROPRANOLOL [Concomitant]
     Indication: HYPERTENSION
     Dosage: 20 MG, 3/D
     Route: 048
     Dates: start: 20100521
  11. ZOFRAN [Concomitant]
     Indication: NAUSEA
     Dosage: 8 MG, UNK
  12. ALPRAZOLAM [Concomitant]
     Indication: SLEEP DISORDER
     Dosage: 1 MG, EACH EVENING
     Route: 048
     Dates: start: 19830101
  13. PHENERGAN [Concomitant]
     Indication: NAUSEA
     Dosage: 25 MG, EVERY 6 HRS
     Route: 048
     Dates: start: 20101116
  14. CARBOPLATIN [Suspect]
     Indication: NON-SMALL CELL LUNG CANCER
     Dosage: 470 MG, UNK
     Dates: start: 20100909, end: 20101130
  15. FOLIC ACID [Concomitant]
     Indication: PROPHYLACTIC CHEMOTHERAPY
     Dosage: 1000 UG, DAILY (1/D)
     Route: 048
     Dates: start: 20100831
  16. PERCOCET [Concomitant]
     Indication: PAIN
     Dosage: 10 MG, OTHER
     Route: 048
     Dates: start: 20101124

REACTIONS (3)
  - ANAEMIA [None]
  - CHEST PAIN [None]
  - CONSTIPATION [None]
